FAERS Safety Report 8065686-1 (Version None)
Quarter: 2012Q1

REPORT INFORMATION
  Report Type: 
  Country: None (occurrence: None)
  Receive Date: 20120117
  Receipt Date: 20120109
  Transmission Date: 20120608
  Serious: Yes (Death)
  Sender: FDA-Public Use
  Company Number: 2012MA000506

PATIENT
  Age: 37 Year
  Sex: Female

DRUGS (8)
  1. PACLITAXEL [Suspect]
     Indication: BREAST CANCER
     Dosage: 175 MG/M**2;X2
  2. DOXORUBICIN HCL [Concomitant]
  3. DEXAMETHASONE [Concomitant]
  4. RANITIDINE [Concomitant]
  5. NEULASTA [Concomitant]
  6. DIPHENHYDRAMINE HCL [Concomitant]
  7. CYCLOPHOSPHAMIDE [Concomitant]
  8. CARVEDILOL [Concomitant]

REACTIONS (7)
  - CARDIAC ARREST [None]
  - INFUSION RELATED REACTION [None]
  - URTICARIA [None]
  - BODY TEMPERATURE INCREASED [None]
  - OXYGEN SATURATION DECREASED [None]
  - RASH PRURITIC [None]
  - ANAPHYLACTIC REACTION [None]
